FAERS Safety Report 6753840-8 (Version None)
Quarter: 2010Q2

REPORT INFORMATION
  Report Type: 
  Country: None (occurrence: None)
  Receive Date: 20100520
  Receipt Date: 20090506
  Transmission Date: 20101027
  Serious: Yes (Hospitalization, Other)
  Sender: FDA-Public Use
  Company Number: 2009209463

PATIENT
  Age: 59 Year
  Sex: Female

DRUGS (9)
  1. MEDROXYPROGESTERONE ACETATE [Suspect]
     Indication: HORMONE REPLACEMENT THERAPY
     Dosage: 2.5 MG
     Dates: start: 19900101, end: 20041201
  2. PREMARIN [Suspect]
     Indication: HORMONE REPLACEMENT THERAPY
     Dosage: 0.9 MG ; 0.625 MG ; 0.9 MG
     Dates: start: 19900101, end: 19980901
  3. PREMARIN [Suspect]
     Indication: HORMONE REPLACEMENT THERAPY
     Dosage: 0.9 MG ; 0.625 MG ; 0.9 MG
     Dates: start: 19980901, end: 20001001
  4. PREMARIN [Suspect]
     Indication: HORMONE REPLACEMENT THERAPY
     Dosage: 0.9 MG ; 0.625 MG ; 0.9 MG
     Dates: start: 20001001, end: 20011201
  5. PREMARIN [Suspect]
     Indication: HORMONE REPLACEMENT THERAPY
     Dosage: 0.9 MG ; 0.625 MG ; 0.9 MG
     Dates: start: 20011201, end: 20041201
  6. PREMPRO [Suspect]
     Indication: HORMONE REPLACEMENT THERAPY
  7. ESTRATEST [Suspect]
     Indication: HORMONE REPLACEMENT THERAPY
  8. LIPITOR [Concomitant]
  9. SULINDAC [Concomitant]

REACTIONS (2)
  - BREAST CANCER [None]
  - OVARIAN CANCER [None]
